FAERS Safety Report 7041458-1 (Version None)
Quarter: 2010Q4

REPORT INFORMATION
  Report Type: 
  Country: None (occurrence: None)
  Receive Date: 20101008
  Receipt Date: 20100923
  Transmission Date: 20110411
  Serious: Yes (Death, Hospitalization, Other)
  Sender: FDA-Public Use
  Company Number: ENTC2010-0146

PATIENT
  Age: 76 Year
  Sex: Female

DRUGS (3)
  1. STALEVO 100 [Suspect]
     Indication: PARKINSON'S DISEASE
     Dosage: 100/25/200 MG, 2 TABLETS PER DAY, ORAL
     Route: 048
     Dates: start: 20060101
  2. TELMISARTAN [Concomitant]
  3. TRAMADOL HCL [Concomitant]

REACTIONS (5)
  - FALL [None]
  - HIP FRACTURE [None]
  - RENAL DISORDER [None]
  - RENAL FAILURE [None]
  - RESPIRATORY ARREST [None]
